FAERS Safety Report 23060696 (Version 3)
Quarter: 2025Q3

REPORT INFORMATION
  Report Type: Spontaneous
  Country: EU (occurrence: EU)
  Receive Date: 20231012
  Receipt Date: 20250827
  Transmission Date: 20251020
  Serious: Yes (Other)
  Sender: ROCHE
  Company Number: None

PATIENT
  Age: 56 Year
  Sex: Male

DRUGS (3)
  1. MYCOPHENOLATE MOFETIL [Suspect]
     Active Substance: MYCOPHENOLATE MOFETIL
     Indication: Prophylaxis against transplant rejection
     Dosage: 2 G, QD
     Route: 065
  2. CYCLOSPORINE [Suspect]
     Active Substance: CYCLOSPORINE
     Indication: Prophylaxis against transplant rejection
     Route: 065
  3. PREDNISOLONE [Suspect]
     Active Substance: PREDNISOLONE
     Indication: Prophylaxis against transplant rejection
     Dosage: 20 MG, QD
     Route: 065

REACTIONS (13)
  - Phaeohyphomycosis [Recovered/Resolved]
  - Condition aggravated [Unknown]
  - Hallucination [Recovered/Resolved]
  - Alternaria infection [Recovered/Resolved]
  - Pneumonia bacterial [Recovered/Resolved]
  - Abiotrophia defectiva endocarditis [Recovered/Resolved]
  - Mediastinitis [Recovered/Resolved]
  - Skin necrosis [Recovered/Resolved]
  - Acute pulmonary oedema [Recovered/Resolved]
  - Fungal disease carrier [Recovered/Resolved]
  - Confusional state [Recovered/Resolved]
  - Subcutaneous abscess [Recovered/Resolved]
  - Skin lesion [Recovered/Resolved]
